FAERS Safety Report 5577711-8 (Version None)
Quarter: 2007Q4

REPORT INFORMATION
  Report Type: 
  Country: None (occurrence: None)
  Receive Date: 20071227
  Receipt Date: 20071220
  Transmission Date: 20080405
  Serious: Yes (Death)
  Sender: FDA-Public Use
  Company Number: 2007SP025327

PATIENT
  Age: 53 Year
  Sex: Male
  Weight: 113.4 kg

DRUGS (8)
  1. TEMODAR [Suspect]
     Indication: GLIOBLASTOMA MULTIFORME
     Dosage: QD; PO; 3500 MG; PO
     Route: 048
     Dates: start: 20071113, end: 20071202
  2. TEMODAR [Suspect]
     Indication: GLIOBLASTOMA MULTIFORME
     Dosage: QD; PO; 3500 MG; PO
     Route: 048
     Dates: start: 20070830
  3. DECADRON [Concomitant]
  4. LEXAPRO [Concomitant]
  5. NEXIUM [Concomitant]
  6. VICODIN [Concomitant]
  7. WELLBUTRIN [Concomitant]
  8. XANAX [Concomitant]

REACTIONS (2)
  - PULMONARY EMBOLISM [None]
  - REFUSAL OF TREATMENT BY PATIENT [None]
